FAERS Safety Report 10063850 (Version 6)
Quarter: 2014Q4

REPORT INFORMATION
  Report Type: Report from Study
  Country: US (occurrence: US)
  Receive Date: 20140408
  Receipt Date: 20141010
  Transmission Date: 20150528
  Serious: Yes (Hospitalization, Other)
  Sender: FDA-Public Use
  Company Number: US-BIOGENIDEC-2014BI031189

PATIENT
  Sex: Female

DRUGS (2)
  1. TYSABRI [Suspect]
     Active Substance: NATALIZUMAB
     Indication: MULTIPLE SCLEROSIS
     Route: 042
     Dates: start: 20130731
  2. AVONEX [Concomitant]
     Active Substance: INTERFERON BETA-1A
     Indication: MULTIPLE SCLEROSIS
     Route: 030
     Dates: start: 20110805

REACTIONS (7)
  - Gastrointestinal anastomotic leak [Unknown]
  - Peritonitis [Unknown]
  - Abdominal sepsis [Unknown]
  - Skin candida [Unknown]
  - Diverticulitis [Recovered/Resolved]
  - Eye disorder [Recovered/Resolved]
  - Multiple sclerosis relapse [Not Recovered/Not Resolved]

NARRATIVE: CASE EVENT DATE: 2013
